FAERS Safety Report 8119369 (Version 2)
Quarter: 2013Q2

REPORT INFORMATION
  Report Type: Spontaneous
  Country: US (occurrence: None)
  Receive Date: 20110817
  Receipt Date: 20120817
  Transmission Date: 20140414
  Serious: Yes (Other)
  Sender: FDA-Public Use
  Company Number: 201110666

PATIENT
  Sex: Female

DRUGS (2)
  1. LIORESAL [Suspect]
     Indication: MUSCLE SPASTICITY
     Dosage: 375.4 MCG, DAILY, INTRATHECAL
     Route: 037
  2. SODIUM CHLORIDE [Concomitant]

REACTIONS (2)
  - MUSCLE SPASTICITY [None]
  - CONDITION AGGRAVATED [None]
